FAERS Safety Report 7550395-5 (Version None)
Quarter: 2011Q2

REPORT INFORMATION
  Report Type: 
  Country: None (occurrence: None)
  Receive Date: 20110615
  Receipt Date: 20110610
  Transmission Date: 20111010
  Serious: Yes (Other)
  Sender: FDA-Public Use
  Company Number: US-ROCHE-782392

PATIENT
  Sex: Female
  Weight: 90.9 kg

DRUGS (4)
  1. BONIVA [Suspect]
     Indication: OSTEOPOROSIS
     Dosage: DATES OF USE: 3 TO 4 YEARS
     Route: 048
  2. POTASSIUM CHLORIDE [Concomitant]
  3. BONIVA [Suspect]
     Route: 048
  4. ALLERGY [Concomitant]
     Dosage: ALLERGY PILLS

REACTIONS (1)
  - TOOTH FRACTURE [None]
